FAERS Safety Report 4821610-3 (Version None)
Quarter: 2005Q4

REPORT INFORMATION
  Report Type: 
  Country: None (occurrence: None)
  Receive Date: 20051107
  Receipt Date: 20050505
  Transmission Date: 20060501
  Serious: Yes (Death, Hospitalization)
  Sender: FDA-Public Use
  Company Number: US-MERCK-0505USA00751

PATIENT
  Age: 53 Year
  Sex: Female
  Weight: 67 kg

DRUGS (5)
  1. VIOXX [Suspect]
     Indication: PAIN
     Route: 048
     Dates: start: 20000906, end: 20030501
  2. DIOVAN [Concomitant]
     Route: 065
     Dates: start: 20030205, end: 20030304
  3. PREMPRO [Concomitant]
     Route: 065
     Dates: start: 19981024, end: 20020427
  4. PROPOXYPHENE NAPSYLATE [Concomitant]
     Route: 065
  5. CATAPRES-TTS-1 [Concomitant]
     Route: 065

REACTIONS (2)
  - CEREBRAL HAEMORRHAGE [None]
  - MYOCARDIAL INFARCTION [None]
